FAERS Safety Report 5703335-5 (Version None)
Quarter: 2008Q2

REPORT INFORMATION
  Report Type: 
  Country: None (occurrence: None)
  Receive Date: 20080411
  Receipt Date: 20080403
  Transmission Date: 20081010
  Serious: Yes (Congenital Anomaly, Other)
  Sender: FDA-Public Use
  Company Number: FR-ABBOTT-08P-056-0445297-00

PATIENT
  Age: 1 Day
  Sex: Male
  Weight: 1.85 kg

DRUGS (3)
  1. DEPAKENE [Suspect]
     Indication: DRUG EXPOSURE DURING PREGNANCY
     Route: 064
  2. DEPAKENE [Suspect]
     Route: 064
  3. DEPAKENE [Suspect]
     Route: 064

REACTIONS (23)
  - ABNORMAL BEHAVIOUR [None]
  - AGGRESSION [None]
  - ANXIETY [None]
  - CARDIAC SEPTAL DEFECT [None]
  - CONGENITAL ANOMALY [None]
  - DEVELOPMENTAL DELAY [None]
  - DISABILITY [None]
  - DISTURBANCE IN ATTENTION [None]
  - DRUG EXPOSURE DURING PREGNANCY [None]
  - DYSPHASIA [None]
  - DYSPRAXIA [None]
  - FOETAL GROWTH RETARDATION [None]
  - INGUINAL HERNIA [None]
  - MEMORY IMPAIRMENT [None]
  - MENTAL IMPAIRMENT [None]
  - MENTAL RETARDATION [None]
  - PREMATURE BABY [None]
  - PSYCHOMOTOR SKILLS IMPAIRED [None]
  - PULMONARY HYPERTENSION [None]
  - SCAPHOCEPHALY [None]
  - SPEECH DISORDER DEVELOPMENTAL [None]
  - SYSTEMIC-PULMONARY ARTERY SHUNT [None]
  - VENTRICULAR SEPTAL DEFECT [None]
